FAERS Safety Report 9228000 (Version 2)
Quarter: 2013Q2

REPORT INFORMATION
  Report Type: Spontaneous
  Country: JP (occurrence: JP)
  Receive Date: 20130412
  Receipt Date: 20130423
  Transmission Date: 20140414
  Serious: Yes (Hospitalization, Other)
  Sender: FDA-Public Use
  Company Number: JP-JNJFOC-20130203242

PATIENT
  Age: 65 Year
  Sex: Female
  Weight: 43 kg

DRUGS (12)
  1. REMICADE [Suspect]
     Indication: RHEUMATOID ARTHRITIS
     Dosage: 13TH INFUSION
     Route: 042
     Dates: start: 20121207
  2. REMICADE [Suspect]
     Indication: RHEUMATOID ARTHRITIS
     Dosage: FIRST DOSE
     Route: 042
     Dates: start: 20110408
  3. REMICADE [Suspect]
     Indication: RHEUMATOID ARTHRITIS
     Route: 042
     Dates: start: 20120817
  4. METHOTREXATE [Concomitant]
     Indication: RHEUMATOID ARTHRITIS
     Route: 048
     Dates: start: 20120220
  5. METHOTREXATE [Concomitant]
     Indication: RHEUMATOID ARTHRITIS
     Dosage: 6 UNITS UNSPECIFIED
     Route: 048
     Dates: start: 20101013
  6. LORFENAMIN [Concomitant]
     Indication: RHEUMATOID ARTHRITIS
     Dosage: 6 UNITS UNSPECIFIED
     Route: 048
     Dates: start: 20101013
  7. PARIET [Concomitant]
     Indication: PROPHYLAXIS
     Dosage: 6 UNITS UNSPECIFIED
     Route: 048
     Dates: start: 20101013
  8. PREDNISOLONE [Concomitant]
     Indication: RHEUMATOID ARTHRITIS
     Dosage: 6 UNITS UNSPECIFIED
     Route: 048
     Dates: start: 20101013
  9. FOLIAMIN [Concomitant]
     Indication: PROPHYLAXIS
     Dosage: 6 UNITS UNSPECIFIED
     Route: 048
     Dates: start: 20110128
  10. LIVALO [Concomitant]
     Indication: HYPERLIPIDAEMIA
     Dosage: 6 UNITS UNSPECIFIED
     Route: 048
     Dates: start: 20111019
  11. LOXONIN [Concomitant]
     Indication: RHEUMATOID ARTHRITIS
     Dosage: 6 UNITS UNSPECIFIED
     Route: 065
     Dates: start: 20120106
  12. VONAFEC [Concomitant]
     Indication: RHEUMATOID ARTHRITIS
     Dosage: 6 UNITS UNSPECIFIED
     Route: 054
     Dates: start: 20120622

REACTIONS (1)
  - Systemic lupus erythematosus [Recovering/Resolving]
